FAERS Safety Report 14682714 (Version 1)
Quarter: 2018Q1

REPORT INFORMATION
  Report Type: Spontaneous
  Country: US (occurrence: US)
  Receive Date: 20180327
  Receipt Date: 20180327
  Transmission Date: 20180509
  Serious: No
  Sender: FDA-Public Use
  Company Number: US-AUROBINDO-AUR-APL-2017-30417

PATIENT
  Sex: Male
  Weight: 81.19 kg

DRUGS (1)
  1. GABAPENTIN CAPSULES 300 MG [Suspect]
     Active Substance: GABAPENTIN
     Indication: FIBROMYALGIA
     Dosage: 300MG CAPSULES THREE TIMES A DAY BY MOUTH
     Route: 048
     Dates: start: 2016, end: 20170130

REACTIONS (1)
  - Drug effect decreased [Unknown]
